FAERS Safety Report 18404199 (Version 1)
Quarter: 2020Q4

REPORT INFORMATION
  Report Type: Spontaneous
  Country: US (occurrence: US)
  Receive Date: 20201020
  Receipt Date: 20201020
  Transmission Date: 20210114
  Serious: No
  Sender: FDA-Public Use
  Company Number: None

PATIENT
  Age: 63 Year
  Sex: Female

DRUGS (1)
  1. ADEMPAS [Suspect]
     Active Substance: RIOCIGUAT
     Indication: PULMONARY HYPERTENSION
     Route: 048
     Dates: start: 20200903

REACTIONS (5)
  - Hypokalaemia [None]
  - Aspartate aminotransferase increased [None]
  - Haemolysis [None]
  - Alanine aminotransferase increased [None]
  - Abdominal hernia [None]

NARRATIVE: CASE EVENT DATE: 20201018
